FAERS Safety Report 10253118 (Version 1)
Quarter: 2014Q2

REPORT INFORMATION
  Report Type: Spontaneous
  Country: US (occurrence: US)
  Receive Date: 20140623
  Receipt Date: 20140623
  Transmission Date: 20141212
  Serious: Yes (Hospitalization)
  Sender: FDA-Public Use
  Company Number: US-GLAXOSMITHKLINE-A1077356A

PATIENT
  Age: 66 Year
  Sex: Female

DRUGS (14)
  1. ADVAIR HFA [Suspect]
     Indication: ASTHMA
     Dosage: 2PUFF TWICE PER DAY
     Route: 055
  2. ADVAIR HFA [Suspect]
     Indication: ASTHMA
     Route: 055
  3. LASIX [Suspect]
     Dosage: 20MG PER DAY
     Dates: start: 201404
  4. ANTIBIOTICS [Suspect]
     Indication: PRODUCT USED FOR UNKNOWN INDICATION
     Route: 065
  5. FUROSEMIDE [Suspect]
     Indication: FLUID RETENTION
     Dosage: 40MG PER DAY
     Route: 065
     Dates: start: 201404
  6. SINGULAIR [Concomitant]
  7. CELEBREX [Concomitant]
  8. DEXILANT [Concomitant]
  9. FOLIC ACID [Concomitant]
  10. ONDANSETRON [Concomitant]
  11. PRILOSEC [Concomitant]
  12. BUSPIRONE [Concomitant]
  13. ALLEGRA [Concomitant]
  14. FLONASE [Concomitant]

REACTIONS (8)
  - Cellulitis [Recovering/Resolving]
  - Candida infection [Recovering/Resolving]
  - Oropharyngeal pain [Recovering/Resolving]
  - Oedema [Recovering/Resolving]
  - Pollakiuria [Recovering/Resolving]
  - Sinusitis [Recovering/Resolving]
  - Wrong technique in drug usage process [Unknown]
  - Drug dose omission [Unknown]
